FAERS Safety Report 6792404-7 (Version None)
Quarter: 2010Q2

REPORT INFORMATION
  Report Type: 
  Country: None (occurrence: None)
  Receive Date: 20100624
  Receipt Date: 20080912
  Transmission Date: 20101027
  Serious: No
  Sender: FDA-Public Use
  Company Number: US-PFIZER INC-2008062556

PATIENT
  Sex: Female
  Weight: 63.636 kg

DRUGS (3)
  1. XALATAN [Suspect]
     Indication: GLAUCOMA
     Dosage: HS
     Dates: start: 20080101
  2. XALATAN [Suspect]
     Indication: OPEN ANGLE GLAUCOMA
  3. AZOPT [Suspect]
     Indication: OPEN ANGLE GLAUCOMA
     Dates: start: 20070101

REACTIONS (1)
  - ALOPECIA [None]
